FAERS Safety Report 10079781 (Version 1)
Quarter: 2014Q2

REPORT INFORMATION
  Report Type: Spontaneous
  Country: FR (occurrence: FR)
  Receive Date: 20140415
  Receipt Date: 20140415
  Transmission Date: 20141212
  Serious: Yes (Hospitalization, Other)
  Sender: FDA-Public Use
  Company Number: FR-GLAXOSMITHKLINE-B0970597A

PATIENT
  Age: 86 Year
  Sex: Male
  Weight: 66.2 kg

DRUGS (6)
  1. ARIXTRA [Suspect]
     Indication: THROMBOSIS PROPHYLAXIS
     Dosage: 2.5MG PER DAY
     Route: 058
     Dates: start: 20131212, end: 20140204
  2. DOLIPRANE [Concomitant]
     Route: 065
  3. OMIX [Concomitant]
     Route: 065
  4. LOVENOX [Concomitant]
     Indication: THROMBOSIS PROPHYLAXIS
     Route: 065
     Dates: end: 20140110
  5. STALEVO [Concomitant]
     Indication: PARKINSON^S DISEASE
     Dosage: 4TAB PER DAY
     Route: 048
     Dates: start: 20131211, end: 20140206
  6. LERCAN [Concomitant]
     Indication: HYPERTENSION
     Dosage: 1TAB PER DAY
     Route: 048
     Dates: start: 20131211, end: 20140206

REACTIONS (2)
  - Haematoma [Recovered/Resolved with Sequelae]
  - Incorrect drug administration duration [Unknown]
